FAERS Safety Report 6164840-3 (Version None)
Quarter: 2009Q2

REPORT INFORMATION
  Report Type: 
  Country: None (occurrence: None)
  Receive Date: 20090423
  Receipt Date: 20090417
  Transmission Date: 20091009
  Serious: Yes (Death, Hospitalization)
  Sender: FDA-Public Use
  Company Number: PHHY2009TW14915

PATIENT
  Age: 82 Year
  Sex: Female

DRUGS (5)
  1. CYCLOSPORINE [Suspect]
     Indication: RHEUMATOID ARTHRITIS
     Dosage: UNK
  2. CORTICOSTEROIDS [Suspect]
     Indication: RHEUMATOID ARTHRITIS
     Dosage: UNK
  3. HYDROXYCHLOROQUINE SULFATE [Concomitant]
     Indication: RHEUMATOID ARTHRITIS
     Dosage: UNK
  4. INSULIN [Concomitant]
     Indication: TYPE 2 DIABETES MELLITUS
     Dosage: UNK
  5. AMPHOTERICIN B [Concomitant]
     Dosage: UNK

REACTIONS (23)
  - ALANINE AMINOTRANSFERASE INCREASED [None]
  - ATRIAL FIBRILLATION [None]
  - BLOOD PRESSURE DECREASED [None]
  - BLOOD SODIUM DECREASED [None]
  - CANDIDA SEPSIS [None]
  - CEREBRAL ARTERY STENOSIS [None]
  - DELIRIUM [None]
  - DYSARTHRIA [None]
  - EYE MOVEMENT DISORDER [None]
  - FALL [None]
  - HEMIPLEGIA [None]
  - HUMERUS FRACTURE [None]
  - HYDROCEPHALUS [None]
  - HYPOAESTHESIA [None]
  - HYPOAESTHESIA FACIAL [None]
  - ISCHAEMIC STROKE [None]
  - LEUKOCYTOSIS [None]
  - MENINGITIS CRYPTOCOCCAL [None]
  - ORTHOPEDIC PROCEDURE [None]
  - REFLEXES ABNORMAL [None]
  - RESPIRATORY MONILIASIS [None]
  - SOMNOLENCE [None]
  - TRANSIENT ISCHAEMIC ATTACK [None]
